FAERS Safety Report 13134199 (Version 6)
Quarter: 2017Q3

REPORT INFORMATION
  Report Type: Spontaneous
  Country: US (occurrence: US)
  Receive Date: 20170120
  Receipt Date: 20170706
  Transmission Date: 20171127
  Serious: Yes (Hospitalization, Other)
  Sender: FDA-Public Use
  Company Number: US-PFIZER INC-2017022366

PATIENT
  Age: 56 Year
  Sex: Male
  Weight: 133.79 kg

DRUGS (4)
  1. SUTENT [Suspect]
     Active Substance: SUNITINIB MALATE
     Dosage: 50 MG, CYCLIC (DAY 1-14 Q 21 DAYS)
     Route: 048
     Dates: start: 20160901
  2. SUTENT [Suspect]
     Active Substance: SUNITINIB MALATE
     Dosage: UNK, CYCLIC
     Dates: start: 20170313
  3. SUTENT [Suspect]
     Active Substance: SUNITINIB MALATE
     Indication: RENAL CANCER
     Dosage: 50 MG, CYCLIC, (DAY 1-14 EVERY 21 DAYS)
     Route: 048
     Dates: start: 20160901
  4. SUTENT [Suspect]
     Active Substance: SUNITINIB MALATE
     Dosage: 50 MG, CYCLIC(DAYS1-14 Q21 DAYS)
     Route: 048
     Dates: start: 20160901

REACTIONS (12)
  - Dyspnoea [Unknown]
  - Constipation [Unknown]
  - Pyrexia [Unknown]
  - Rash [Unknown]
  - Blood magnesium decreased [Unknown]
  - Depression [Unknown]
  - Bone abscess [Unknown]
  - Arthritis infective [Unknown]
  - Bursitis [Unknown]
  - Acne [Unknown]
  - Blood potassium decreased [Unknown]
  - Joint effusion [Unknown]

NARRATIVE: CASE EVENT DATE: 20170529
